FAERS Safety Report 10108789 (Version 2)
Quarter: 2014Q2

REPORT INFORMATION
  Report Type: Report from Study
  Country: HU (occurrence: HU)
  Receive Date: 20140425
  Receipt Date: 20140521
  Transmission Date: 20141212
  Serious: Yes (Other)
  Sender: FDA-Public Use
  Company Number: HU-ROCHE-1389264

PATIENT
  Age: 82 Year
  Sex: Male
  Weight: 66 kg

DRUGS (3)
  1. XELODA [Suspect]
     Indication: COLORECTAL CANCER
     Dosage: 2000 MG + 2500 MG
     Route: 048
     Dates: start: 20111028, end: 20111211
  2. XELODA [Suspect]
     Route: 048
     Dates: start: 20111212, end: 20120212
  3. XELODA [Suspect]
     Dosage: 1000+1500 MG
     Route: 048
     Dates: start: 20120213, end: 20120408

REACTIONS (3)
  - Disease progression [Unknown]
  - Diarrhoea [Recovering/Resolving]
  - Palmar-plantar erythrodysaesthesia syndrome [Recovering/Resolving]
